FAERS Safety Report 24588914 (Version 9)
Quarter: 2025Q3

REPORT INFORMATION
  Report Type: Spontaneous
  Country: CO (occurrence: CO)
  Receive Date: 20241107
  Receipt Date: 20250718
  Transmission Date: 20251021
  Serious: No
  Sender: PFIZER
  Company Number: CO-PFIZER INC-PV202400140134

PATIENT
  Age: 11 Year
  Sex: Male

DRUGS (1)
  1. GENOTROPIN [Suspect]
     Active Substance: SOMATROPIN
     Dosage: 1 MG, DAILY
     Route: 058

REACTIONS (4)
  - Device issue [Unknown]
  - Device defective [Unknown]
  - Device occlusion [Unknown]
  - Product expiration date issue [Unknown]
